FAERS Safety Report 20391109 (Version 1)
Quarter: 2022Q1

REPORT INFORMATION
  Report Type: Spontaneous
  Country: US (occurrence: None)
  Receive Date: 20220127
  Receipt Date: 20220127
  Transmission Date: 20220423
  Serious: Yes (Hospitalization)
  Sender: FDA-Public Use
  Company Number: None

PATIENT
  Age: 72 Year
  Sex: Male

DRUGS (11)
  1. REVLIMID [Suspect]
     Active Substance: LENALIDOMIDE
     Indication: Plasma cell myeloma
     Dosage: OTHER FREQUENCY : QD X21/28D ;?
     Route: 048
     Dates: start: 20140403
  2. ISATUXIMAB [Concomitant]
  3. DEXAMETHASONE [Suspect]
     Active Substance: DEXAMETHASONE
  4. ASPIRIN [Suspect]
     Active Substance: ASPIRIN
  5. GABAPENTIN [Concomitant]
     Active Substance: GABAPENTIN
  6. CANNABIDIOL [Concomitant]
     Active Substance: CANNABIDIOL
  7. THERA-M [Concomitant]
  8. ATORVASTATIN [Suspect]
     Active Substance: ATORVASTATIN
  9. VITAMIN D3 [Concomitant]
     Active Substance: CHOLECALCIFEROL
  10. COENZYME Q10 [Concomitant]
     Active Substance: DIETARY SUPPLEMENT\UBIDECARENONE
  11. FAMOTIDINE [Concomitant]
     Active Substance: FAMOTIDINE

REACTIONS (4)
  - Pulmonary embolism [None]
  - Pulmonary infarction [None]
  - Gastrooesophageal reflux disease [None]
  - Plasma cell myeloma recurrent [None]

NARRATIVE: CASE EVENT DATE: 20211231
